FAERS Safety Report 7304713-3 (Version None)
Quarter: 2011Q1

REPORT INFORMATION
  Report Type: 
  Country: None (occurrence: None)
  Receive Date: 20110222
  Receipt Date: 20110217
  Transmission Date: 20110831
  Serious: No
  Sender: FDA-Public Use
  Company Number: US-PFIZER INC-2011035965

PATIENT
  Sex: Male
  Weight: 108.84 kg

DRUGS (3)
  1. OXYCONTIN [Concomitant]
     Indication: PAIN
     Dosage: UNK
  2. METHADONE [Concomitant]
     Indication: PAIN
  3. CHANTIX [Suspect]
     Indication: SMOKING CESSATION THERAPY
     Dosage: 0.5 MG, DAILY
     Route: 048
     Dates: start: 20110211

REACTIONS (2)
  - NAUSEA [None]
  - ABDOMINAL DISCOMFORT [None]
